FAERS Safety Report 15707372 (Version 1)
Quarter: 2018Q4

REPORT INFORMATION
  Report Type: Spontaneous
  Country: US (occurrence: US)
  Receive Date: 20181211
  Receipt Date: 20181211
  Transmission Date: 20190205
  Serious: No
  Sender: FDA-Public Use
  Company Number: US-SHIRE-US201847683

PATIENT
  Sex: Female

DRUGS (1)
  1. GATTEX [Suspect]
     Active Substance: TEDUGLUTIDE\WATER
     Indication: OFF LABEL USE
     Dosage: UNK
     Route: 065
     Dates: start: 20171009

REACTIONS (3)
  - Off label use [Unknown]
  - Abdominal pain [Unknown]
  - Spinal pain [Unknown]
